FAERS Safety Report 8396931-0 (Version None)
Quarter: 2012Q2

REPORT INFORMATION
  Report Type: 
  Country: None (occurrence: None)
  Receive Date: 20120530
  Receipt Date: 20120522
  Transmission Date: 20120825
  Serious: Yes (Other)
  Sender: FDA-Public Use
  Company Number: FR-PFIZER INC-2012105551

PATIENT
  Age: 64 Year
  Sex: Female

DRUGS (1)
  1. CYTARABINE [Suspect]

REACTIONS (1)
  - ENCEPHALITIS [None]
